FAERS Safety Report 4996819-9 (Version None)
Quarter: 2006Q2

REPORT INFORMATION
  Report Type: 
  Country: None (occurrence: None)
  Receive Date: 20060509
  Receipt Date: 20060227
  Transmission Date: 20061013
  Serious: Yes (Hospitalization, Disabling)
  Sender: FDA-Public Use
  Company Number: US-MERCK-0603USA00010

PATIENT
  Age: 51 Year
  Sex: Male
  Weight: 155 kg

DRUGS (5)
  1. VIOXX [Suspect]
     Indication: ARTHRITIS
     Route: 048
     Dates: start: 20031101, end: 20040901
  2. INSULIN [Concomitant]
     Route: 065
  3. PREVACID [Concomitant]
     Route: 065
  4. ROLAIDS [Concomitant]
     Route: 065
  5. [THERAPY UNSPECIFIED] [Concomitant]
     Route: 065

REACTIONS (8)
  - ARRHYTHMIA [None]
  - CARDIAC DISORDER [None]
  - CEREBROVASCULAR ACCIDENT [None]
  - OEDEMA [None]
  - OVERDOSE [None]
  - SKIN CANCER [None]
  - SLEEP APNOEA SYNDROME [None]
  - THROMBOSIS [None]
